FAERS Safety Report 6422410-3 (Version None)
Quarter: 2009Q4

REPORT INFORMATION
  Report Type: 
  Country: None (occurrence: None)
  Receive Date: 20091030
  Receipt Date: 20090723
  Transmission Date: 20100525
  Serious: Yes (Death, Hospitalization)
  Sender: FDA-Public Use
  Company Number: PHEH2009US13166

PATIENT
  Sex: Male

DRUGS (9)
  1. EXJADE [Suspect]
     Indication: CHRONIC MYELOID LEUKAEMIA
     Dosage: 1000 MG, QD
     Dates: start: 20090421, end: 20090619
  2. EXJADE [Suspect]
     Indication: IRON OVERLOAD
  3. CITALOPRAM [Concomitant]
     Dosage: 20 MG, QD
     Route: 048
  4. LEVOTHYROXINE SODIUM [Concomitant]
     Dosage: 75 MEQ, QD
     Route: 048
  5. PROTONIX [Concomitant]
     Dosage: 40 MG, UNK
  6. ARICEPT [Concomitant]
     Indication: DEMENTIA ALZHEIMER'S TYPE
     Dosage: 10 MG, QD
     Route: 048
  7. VICODIN [Concomitant]
     Dosage: UNK
     Route: 048
  8. BUMEX [Concomitant]
     Dosage: UNK
     Dates: end: 20090619
  9. GLEEVEC [Concomitant]
     Dates: end: 20090619

REACTIONS (5)
  - CARDIAC FAILURE [None]
  - CARDIAC FAILURE CONGESTIVE [None]
  - DYSPNOEA [None]
  - HAEMOGLOBIN DECREASED [None]
  - PRESYNCOPE [None]
